FAERS Safety Report 4263075-9 (Version None)
Quarter: 2004Q1

REPORT INFORMATION
  Report Type: 
  Country: None (occurrence: None)
  Receive Date: 20040105
  Receipt Date: 20031224
  Transmission Date: 20041129
  Serious: Yes (Hospitalization)
  Sender: FDA-Public Use
  Company Number: PHBS2003JP14434

PATIENT
  Sex: Female

DRUGS (1)
  1. AREDIA [Suspect]
     Indication: MULTIPLE MYELOMA
     Dosage: 30 MG, ONCE/SINGLE
     Dates: start: 20031217, end: 20031217

REACTIONS (2)
  - PNEUMONIA [None]
  - PYREXIA [None]
